FAERS Safety Report 7774159-2 (Version None)
Quarter: 2011Q3

REPORT INFORMATION
  Report Type: 
  Country: None (occurrence: None)
  Receive Date: 20110921
  Receipt Date: 20110906
  Transmission Date: 20111222
  Serious: Yes (Hospitalization)
  Sender: FDA-Public Use
  Company Number: 2011MA013063

PATIENT
  Age: 31 Year
  Sex: Female

DRUGS (4)
  1. FENTANYL [Suspect]
     Indication: EPIDURAL ANAESTHESIA
     Dosage: 2 UG/ML;ED
     Route: 008
  2. SODIUM CHLORIDE [Suspect]
     Indication: PAIN MANAGEMENT
     Dosage: 10 ML;ED
     Route: 008
  3. PAREGORIC LIQUID USP (ALPHARMA) (PAREGORIC) [Suspect]
     Indication: PAIN MANAGEMENT
     Dosage: 2 MG;Q12H;ED
     Route: 008
  4. ROPIVACAINE HYDROCHLORIDE [Suspect]
     Indication: EPIDURAL ANAESTHESIA
     Dosage: 1 %;ED
     Route: 008

REACTIONS (7)
  - MATERNAL EXPOSURE DURING PREGNANCY [None]
  - BACK PAIN [None]
  - INJECTION SITE DISCHARGE [None]
  - PAIN IN EXTREMITY [None]
  - STAPHYLOCOCCAL INFECTION [None]
  - INFECTIVE MYOSITIS [None]
  - CAESAREAN SECTION [None]
